FAERS Safety Report 24235930 (Version 1)
Quarter: 2024Q3

REPORT INFORMATION
  Report Type: Spontaneous
  Country: EG (occurrence: EG)
  Receive Date: 20240822
  Receipt Date: 20240822
  Transmission Date: 20241017
  Serious: Yes (Hospitalization, Other)
  Sender: NOVO NORDISK
  Company Number: EG-NOVOPROD-1269648

PATIENT
  Age: 636 Month
  Sex: Male
  Weight: 105 kg

DRUGS (4)
  1. INSULIN ASPART [Suspect]
     Active Substance: INSULIN ASPART
     Indication: Diabetes mellitus
     Dosage: UNK
     Route: 058
  2. GAPTIN [Concomitant]
     Indication: Neuropathy peripheral
     Dosage: 400 (TWICE DAILY AM AND PM)
     Route: 048
  3. .ALPHA.-LIPOIC ACID [Concomitant]
     Active Substance: .ALPHA.-LIPOIC ACID
     Indication: Neuropathy peripheral
     Dosage: 600
     Route: 048
  4. GLIPTUS [Concomitant]
     Indication: Diabetes mellitus
     Dosage: UNK, TWICE DAILY AM AND PM

REACTIONS (1)
  - Coronary arterial stent insertion [Unknown]
